FAERS Safety Report 13028669 (Version 5)
Quarter: 2018Q4

REPORT INFORMATION
  Report Type: Spontaneous
  Country: US (occurrence: US)
  Receive Date: 20161214
  Receipt Date: 20181227
  Transmission Date: 20190204
  Serious: Yes (Other)
  Sender: FDA-Public Use
  Company Number: US-ACTELION-A-NJ2016-146916

PATIENT
  Age: 57 Year
  Sex: Female

DRUGS (23)
  1. OPSUMIT [Suspect]
     Active Substance: MACITENTAN
     Indication: PULMONARY ARTERIAL HYPERTENSION
     Dosage: 10 MG, QD
     Route: 048
     Dates: start: 20161010
  2. PLAQUENIL [Concomitant]
     Active Substance: HYDROXYCHLOROQUINE SULFATE
     Dosage: 200 MG, UNK
     Dates: start: 20170906
  3. KEFLEXIN [Concomitant]
     Active Substance: CEPHALEXIN
     Dosage: 250 MG, UNK
     Dates: start: 20170906
  4. PREDNISONE. [Concomitant]
     Active Substance: PREDNISONE
     Dosage: 20 UNK, UNK
     Dates: start: 20161110
  5. OMEPRAZOLE. [Concomitant]
     Active Substance: OMEPRAZOLE
     Dosage: 40 UNK, UNK
     Dates: start: 20161110
  6. ASPIRIN. [Concomitant]
     Active Substance: ASPIRIN
     Dosage: 81 MG, UNK
     Dates: start: 20161110
  7. PLAQUENIL [Concomitant]
     Active Substance: HYDROXYCHLOROQUINE SULFATE
     Dosage: 200 MG, UNK
     Dates: start: 20161110
  8. METHOTREXATE. [Concomitant]
     Active Substance: METHOTREXATE
  9. LIOTHYRONINE [Concomitant]
     Active Substance: LIOTHYRONINE
     Dosage: 5 MCG, UNK
     Dates: start: 20161212
  10. FOLIC ACID. [Concomitant]
     Active Substance: FOLIC ACID
  11. ADVIL [Concomitant]
     Active Substance: IBUPROFEN
     Dosage: 200 MG, UNK
     Dates: start: 20170906
  12. LIOTHYRONINE [Concomitant]
     Active Substance: LIOTHYRONINE
     Dosage: UNK
     Dates: start: 20170908
  13. TRAMADOL. [Concomitant]
     Active Substance: TRAMADOL
  14. MULTIVITAMIN [Concomitant]
     Active Substance: VITAMINS
     Dosage: UNK
     Dates: start: 20170906
  15. VITAMIN B12 [Concomitant]
     Active Substance: CYANOCOBALAMIN
     Dosage: 100 MCG, UNK
     Dates: start: 20170906
  16. ASPIRIN. [Concomitant]
     Active Substance: ASPIRIN
     Dosage: UNK
     Dates: start: 20170906
  17. LEVOTHYROXINE. [Concomitant]
     Active Substance: LEVOTHYROXINE
     Dosage: 75 MCG, UNK
     Dates: start: 20170906
  18. NEURONTIN [Concomitant]
     Active Substance: GABAPENTIN
     Dosage: UNK
     Dates: start: 20170530
  19. PREDNISONE. [Concomitant]
     Active Substance: PREDNISONE
     Dosage: 2.5 MG, UNK
     Dates: start: 20170906
  20. OMEPRAZOLE. [Concomitant]
     Active Substance: OMEPRAZOLE
     Dosage: 20 MG, UNK
     Dates: start: 20170906
  21. NIFEDIPINE. [Concomitant]
     Active Substance: NIFEDIPINE
     Dosage: 90 MG, UNK
     Dates: start: 20170906
  22. TYLENOL [Concomitant]
     Active Substance: ACETAMINOPHEN
     Dosage: 325 MG, UNK
     Dates: start: 20170906
  23. VITAMIN D3 [Concomitant]
     Active Substance: CHOLECALCIFEROL
     Dosage: 400 U, UNK
     Dates: start: 20170906

REACTIONS (6)
  - Memory impairment [Unknown]
  - Product dose omission [Unknown]
  - Systemic lupus erythematosus [Not Recovered/Not Resolved]
  - Scleroderma [Not Recovered/Not Resolved]
  - Muscle spasms [Unknown]
  - Oral infection [Unknown]

NARRATIVE: CASE EVENT DATE: 201711
